FAERS Safety Report 20362421 (Version 2)
Quarter: 2022Q1

REPORT INFORMATION
  Report Type: Other
  Country: SN (occurrence: SN)
  Receive Date: 20220121
  Receipt Date: 20220211
  Transmission Date: 20220423
  Serious: Yes (Life-Threatening, Other)
  Sender: FDA-Public Use
  Company Number: SN-BoehringerIngelheim-2022-BI-107675

PATIENT
  Age: 34 Year
  Sex: Female

DRUGS (4)
  1. METALYSE [Suspect]
     Active Substance: TENECTEPLASE
     Indication: Acute myocardial infarction
     Route: 042
  2. ASPIRIN [Concomitant]
     Active Substance: ASPIRIN
     Indication: Acute myocardial infarction
     Route: 042
  3. CLOPIDOGREL [Concomitant]
     Active Substance: CLOPIDOGREL BISULFATE
     Indication: Acute myocardial infarction
     Route: 048
  4. HEPARIN [Concomitant]
     Active Substance: HEPARIN SODIUM
     Indication: Acute myocardial infarction

REACTIONS (10)
  - Cardiac arrest [Unknown]
  - Ventricular fibrillation [Unknown]
  - Shock haemorrhagic [Unknown]
  - Haemoperitoneum [Unknown]
  - Coronary artery occlusion [Recovering/Resolving]
  - Hepatic haemorrhage [Unknown]
  - Ejection fraction decreased [Recovering/Resolving]
  - Hypokinesia [Recovering/Resolving]
  - General physical health deterioration [Unknown]
  - Haemodynamic instability [Unknown]
